FAERS Safety Report 8852067 (Version 3)
Quarter: 2012Q4

REPORT INFORMATION
  Report Type: 
  Country: NL (occurrence: NL)
  Receive Date: 20121022
  Receipt Date: 20121218
  Transmission Date: 20130627
  Serious: Yes (Death)
  Sender: FDA-Public Use
  Company Number: PHHY2012NL093935

PATIENT
  Sex: Female

DRUGS (4)
  1. ZOMETA [Suspect]
     Indication: BREAST CANCER METASTATIC
     Dosage: 4 mg/100ml 1x per 28 days
  2. ZOMETA [Suspect]
     Dosage: 4 mg/100ml 1x per 28 days
     Dates: start: 20120906
  3. ZOMETA [Suspect]
     Dosage: 4 mg/100ml 1x per 28 days
     Dates: start: 20121003
  4. DEXAMETHASONE [Concomitant]
     Dosage: 4 mg, UNK
     Dates: start: 20120821

REACTIONS (1)
  - Neoplasm malignant [Fatal]
